FAERS Safety Report 9720426 (Version 3)
Quarter: 2015Q3

REPORT INFORMATION
  Report Type: Spontaneous
  Country: BR (occurrence: BR)
  Receive Date: 20131129
  Receipt Date: 20150930
  Transmission Date: 20151125
  Serious: Yes (Hospitalization, Disabling, Other)
  Sender: FDA-Public Use
  Company Number: BR-JNJFOC-20120812110

PATIENT
  Age: 38 Year
  Sex: Female

DRUGS (3)
  1. REMICADE [Suspect]
     Active Substance: INFLIXIMAB
     Indication: RHEUMATOID ARTHRITIS
     Route: 042
  2. REMICADE [Suspect]
     Active Substance: INFLIXIMAB
     Indication: RHEUMATOID ARTHRITIS
     Route: 042
  3. REMICADE [Suspect]
     Active Substance: INFLIXIMAB
     Indication: RHEUMATOID ARTHRITIS
     Route: 042
     Dates: start: 20150730

REACTIONS (9)
  - Bone deformity [Not Recovered/Not Resolved]
  - Foot operation [Unknown]
  - Hospitalisation [Not Recovered/Not Resolved]
  - Surgery [Unknown]
  - Arthralgia [Not Recovered/Not Resolved]
  - Joint effusion [Unknown]
  - Movement disorder [Unknown]
  - Pain [Unknown]
  - Diabetes mellitus [Not Recovered/Not Resolved]

NARRATIVE: CASE EVENT DATE: 2010
